FAERS Safety Report 21991122 (Version 2)
Quarter: 2025Q3

REPORT INFORMATION
  Report Type: Report from Study
  Country: US (occurrence: US)
  Receive Date: 20230214
  Receipt Date: 20250925
  Transmission Date: 20251021
  Serious: No
  Sender: SANOFI AVENTIS
  Company Number: US-SANOFI-01485139

PATIENT
  Age: 75 Year
  Sex: Female

DRUGS (6)
  1. DUPIXENT [Suspect]
     Active Substance: DUPILUMAB
     Indication: Asthma
     Dosage: 300 MG QOW
     Route: 058
     Dates: start: 20200512, end: 20250909
  2. HYDROCHLOROTHIAZIDE [Concomitant]
     Active Substance: HYDROCHLOROTHIAZIDE
  3. CARVEDILOL [Concomitant]
     Active Substance: CARVEDILOL
  4. SYNTHROID [Concomitant]
     Active Substance: LEVOTHYROXINE SODIUM
  5. SINGULAIR [Concomitant]
     Active Substance: MONTELUKAST SODIUM
  6. ALBUTEROL [Concomitant]
     Active Substance: ALBUTEROL

REACTIONS (4)
  - Pustule [Recovering/Resolving]
  - Urticaria [Recovering/Resolving]
  - Erythema [Recovering/Resolving]
  - Accidental exposure to product [Unknown]

NARRATIVE: CASE EVENT DATE: 20230207
